FAERS Safety Report 13108676 (Version 1)
Quarter: 2017Q1

REPORT INFORMATION
  Report Type: Spontaneous
  Country: US (occurrence: US)
  Receive Date: 20170111
  Receipt Date: 20170111
  Transmission Date: 20170428
  Serious: No
  Sender: FDA-Public Use
  Company Number: None

PATIENT
  Age: 55 Year
  Sex: Female
  Weight: 63 kg

DRUGS (6)
  1. PICATO [Suspect]
     Active Substance: INGENOL MEBUTATE
     Indication: ACTINIC KERATOSIS
     Dosage: 4 GEL DAILY TOPICAL
     Route: 061
     Dates: start: 20170109, end: 20170110
  2. ZINC. [Concomitant]
     Active Substance: ZINC
  3. ECHINACHEA [Concomitant]
  4. SYMVASTATIN [Concomitant]
  5. TYLENOL [Concomitant]
     Active Substance: ACETAMINOPHEN
  6. ALEVE [Concomitant]
     Active Substance: NAPROXEN SODIUM

REACTIONS (8)
  - Swelling [None]
  - Lip swelling [None]
  - Pruritus [None]
  - Lip pain [None]
  - Pain [None]
  - Skin reaction [None]
  - Blister [None]
  - Rash [None]

NARRATIVE: CASE EVENT DATE: 20170111
